FAERS Safety Report 18671861 (Version 1)
Quarter: 2020Q4

REPORT INFORMATION
  Report Type: Spontaneous
  Country: NL (occurrence: NL)
  Receive Date: 20201228
  Receipt Date: 20201228
  Transmission Date: 20210114
  Serious: Yes (Hospitalization, Other)
  Sender: FDA-Public Use
  Company Number: NL-EPIC PHARMA LLC-2020EPC00400

PATIENT
  Age: 4 Week
  Sex: Male
  Weight: 3.36 kg

DRUGS (2)
  1. VITAMIN D [Concomitant]
     Active Substance: VITAMIN D NOS
     Dosage: UNK GTT
     Route: 065
  2. CITALOPRAM [Suspect]
     Active Substance: CITALOPRAM HYDROBROMIDE
     Dosage: 20 MG
     Route: 048

REACTIONS (5)
  - Feeling jittery [Recovered/Resolved]
  - Opisthotonus [Recovered/Resolved]
  - Wrong product administered [Recovered/Resolved]
  - Toxicity to various agents [Recovered/Resolved]
  - Hypertonia [Recovered/Resolved]
